FAERS Safety Report 6662877-9 (Version None)
Quarter: 2010Q1

REPORT INFORMATION
  Report Type: 
  Country: None (occurrence: None)
  Receive Date: 20100323
  Receipt Date: 20090311
  Transmission Date: 20100710
  Serious: Yes (Hospitalization)
  Sender: FDA-Public Use
  Company Number: US-SEPTODONT-200900084

PATIENT
  Age: 21 Year
  Sex: Female
  Weight: 61 kg

DRUGS (3)
  1. LIDOCAINE HYDROCHLORIDE 2% W/ EPINEPHRINE INJ [Suspect]
     Indication: LOCAL ANAESTHESIA
     Dosage: DENTAL
     Route: 004
     Dates: start: 20090304
  2. TOPEX (BENZOCAINE) [Concomitant]
  3. (METOPROLOL) [Concomitant]

REACTIONS (2)
  - HYPERTENSION [None]
  - TACHYCARDIA [None]
